FAERS Safety Report 13977107 (Version 3)
Quarter: 2018Q4

REPORT INFORMATION
  Report Type: Report from Study
  Country: US (occurrence: US)
  Receive Date: 20170915
  Receipt Date: 20181123
  Transmission Date: 20190204
  Serious: Yes (Other)
  Sender: FDA-Public Use
  Company Number: PHEH2017US029197

PATIENT
  Age: 14 Year
  Sex: Female

DRUGS (3)
  1. AFINITOR [Suspect]
     Active Substance: EVEROLIMUS
     Dosage: 7.5 MG, QD
     Route: 048
  2. AFINITOR [Suspect]
     Active Substance: EVEROLIMUS
     Indication: ASTROCYTOMA, LOW GRADE
     Dosage: 5 MG, QD
     Route: 048
     Dates: start: 20170827
  3. AFINITOR [Suspect]
     Active Substance: EVEROLIMUS
     Dosage: 10 MG, QD
     Route: 048

REACTIONS (7)
  - Abnormal behaviour [Unknown]
  - Drug level decreased [Unknown]
  - Seizure [Unknown]
  - Aggression [Unknown]
  - Gait disturbance [Unknown]
  - Constipation [Unknown]
  - Stomatitis [Unknown]

NARRATIVE: CASE EVENT DATE: 20170926
